FAERS Safety Report 14245008 (Version 5)
Quarter: 2025Q2

REPORT INFORMATION
  Report Type: Report from Study
  Country: DE (occurrence: DE)
  Receive Date: 20171201
  Receipt Date: 20250523
  Transmission Date: 20250717
  Serious: Yes (Hospitalization, Other)
  Sender: ROCHE
  Company Number: None

PATIENT
  Age: 55 Year
  Sex: Female

DRUGS (8)
  1. TOCILIZUMAB [Suspect]
     Active Substance: TOCILIZUMAB
     Indication: Rheumatoid arthritis
     Route: 058
     Dates: end: 20170723
  2. OLUMIANT [Suspect]
     Active Substance: BARICITINIB
     Indication: Rheumatoid arthritis
     Route: 065
  3. PREDNISOLONE [Concomitant]
     Active Substance: PREDNISOLONE
  4. ALENDRONIC ACID [Concomitant]
     Active Substance: ALENDRONIC ACID
  5. FOLIC ACID [Concomitant]
     Active Substance: FOLIC ACID
  6. CHOLECALCIFEROL [Concomitant]
     Active Substance: CHOLECALCIFEROL
  7. PANTOPRAZOLE SODIUM [Concomitant]
     Active Substance: PANTOPRAZOLE SODIUM
  8. VIDISEPT [Concomitant]

REACTIONS (15)
  - Rheumatoid arthritis [Recovered/Resolved]
  - Reactive gastropathy [Unknown]
  - Steatohepatitis [Unknown]
  - Duodenal ulcer [Unknown]
  - Osteoporotic fracture [Unknown]
  - Chronic gastritis [Unknown]
  - Hepatic steatosis [Unknown]
  - Dyspnoea [Unknown]
  - Nasopharyngitis [Unknown]
  - Dry eye [Unknown]
  - Full blood count abnormal [Unknown]
  - Colitis [Unknown]
  - Hiatus hernia [Unknown]
  - Gastrooesophageal reflux disease [Unknown]
  - Duodenitis [Unknown]

NARRATIVE: CASE EVENT DATE: 20170215
